FAERS Safety Report 9543646 (Version 3)
Quarter: 2013Q4

REPORT INFORMATION
  Report Type: Spontaneous
  Country: JP (occurrence: JP)
  Receive Date: 20130923
  Receipt Date: 20131003
  Transmission Date: 20140711
  Serious: Yes (Death)
  Sender: FDA-Public Use
  Company Number: JP-BRISTOL-MYERS SQUIBB COMPANY-19227388

PATIENT
  Age: 32 Year
  Sex: Female

DRUGS (9)
  1. ABILIFY DISCMELT TABS [Suspect]
     Indication: PSYCHIATRIC SYMPTOM
     Dosage: ORODISPERSIBLE?12AUG13:14AUG13:6MG:3D?15AUG13:20AUG13:30MG:6D:INCREASED
     Route: 048
     Dates: start: 20130812, end: 20130820
  2. ABILIFY DISCMELT TABS [Suspect]
     Indication: SCHIZOPHRENIA
     Dosage: ORODISPERSIBLE?12AUG13:14AUG13:6MG:3D?15AUG13:20AUG13:30MG:6D:INCREASED
     Route: 048
     Dates: start: 20130812, end: 20130820
  3. ABILIFY ORAL SOLUTION [Suspect]
     Indication: RESTLESSNESS
     Route: 048
     Dates: start: 20130815, end: 20130820
  4. INVEGA [Suspect]
     Indication: SCHIZOPHRENIA
     Dosage: DOSE INCREASED TO 9 MG FROM 6MG
     Route: 047
     Dates: start: 20130812, end: 20130814
  5. LORAZEPAM [Suspect]
     Indication: SCHIZOPHRENIA
     Route: 048
     Dates: start: 20130812, end: 20130820
  6. LUNESTA [Suspect]
     Indication: INSOMNIA
     Route: 048
     Dates: start: 20130812, end: 20130820
  7. CERCINE [Suspect]
     Indication: MENTAL DISORDER
     Route: 030
     Dates: start: 20130819, end: 20130819
  8. MAGMITT [Concomitant]
     Dosage: TABS
     Dates: start: 20130812, end: 20130820
  9. ROZEREM [Concomitant]
     Dosage: TABS
     Dates: start: 20130812, end: 20130820

REACTIONS (2)
  - Completed suicide [Fatal]
  - Psychiatric symptom [Fatal]
